FAERS Safety Report 7072303-6 (Version None)
Quarter: 2010Q4

REPORT INFORMATION
  Report Type: 
  Country: None (occurrence: None)
  Receive Date: 20101029
  Receipt Date: 20100106
  Transmission Date: 20110411
  Serious: No
  Sender: FDA-Public Use
  Company Number: A0838016A

PATIENT
  Age: 58 Year
  Sex: Female

DRUGS (20)
  1. ADVAIR DISKUS 100/50 [Suspect]
     Indication: ASTHMA
     Dosage: 1PUFF TWICE PER DAY
     Route: 055
     Dates: start: 20100104, end: 20100105
  2. VENTOLIN [Suspect]
     Indication: ASTHMA
     Route: 055
  3. SINGULAIR [Concomitant]
  4. CLARINEX [Concomitant]
  5. ALBUTEROL [Concomitant]
  6. AMARYL [Concomitant]
  7. UNSPECIFIED MEDICATION [Concomitant]
  8. TIGAN [Concomitant]
  9. CATAPRES [Concomitant]
  10. UNSPECIFIED MEDICATION [Concomitant]
  11. KLONOPIN [Concomitant]
  12. CYMBALTA [Concomitant]
  13. AMBIEN [Concomitant]
  14. SONATA [Concomitant]
  15. METOPROLOL [Concomitant]
  16. LOVAZA [Concomitant]
  17. NASONEX [Concomitant]
  18. LIPITOR [Concomitant]
  19. KEPPRA [Concomitant]
  20. PROVENTIL [Concomitant]

REACTIONS (2)
  - DRUG INEFFECTIVE [None]
  - DYSPNOEA [None]
